FAERS Safety Report 14363509 (Version 1)
Quarter: 2018Q1

REPORT INFORMATION
  Report Type: Spontaneous
  Country: US (occurrence: US)
  Receive Date: 20180108
  Receipt Date: 20180108
  Transmission Date: 20180509
  Serious: Yes (Other)
  Sender: FDA-Public Use
  Company Number: US-PFIZER INC-2018003056

PATIENT
  Age: 52 Year
  Sex: Female
  Weight: 126.1 kg

DRUGS (1)
  1. ATROPINE SULFATE/DIPHENOXYLATE HYDROCHLORIDE [Suspect]
     Active Substance: ATROPINE SULFATE\DIPHENOXYLATE HYDROCHLORIDE
     Indication: DIARRHOEA
     Dosage: 1 DF, 3X/DAY [DIPHENOXYLATE-2.5MG]/[ ATROPINE-0.025MG]
     Dates: start: 201711, end: 2017

REACTIONS (3)
  - Product use issue [Unknown]
  - Haematochezia [Recovered/Resolved with Sequelae]
  - Abnormal faeces [Not Recovered/Not Resolved]

NARRATIVE: CASE EVENT DATE: 2017
